FAERS Safety Report 13579757 (Version 1)
Quarter: 2017Q2

REPORT INFORMATION
  Report Type: Spontaneous
  Country: US (occurrence: US)
  Receive Date: 20170525
  Receipt Date: 20170525
  Transmission Date: 20170830
  Serious: Yes (Other)
  Sender: FDA-Public Use
  Company Number: US-CLINIGEN GROUP PLC/ CLINIGEN HEALTHCARE LTD-E2B_00005292

PATIENT
  Sex: Male

DRUGS (3)
  1. GANCICLOVIR. [Concomitant]
     Active Substance: GANCICLOVIR
     Indication: CYTOMEGALOVIRUS CHORIORETINITIS
     Dosage: DOSE: 70 MG TOTAL DAILY DOSE: 70 MG
     Route: 065
     Dates: start: 19960715
  2. FOSCAVIR [Suspect]
     Active Substance: FOSCARNET SODIUM
     Indication: CYTOMEGALOVIRUS CHORIORETINITIS
     Dosage: DOSE: 3819 MG TOTAL DAILY DOSE: 3819 MG
     Route: 042
     Dates: start: 19960715, end: 19961001
  3. FOSCAVIR [Suspect]
     Active Substance: FOSCARNET SODIUM
     Route: 042

REACTIONS (4)
  - Haematuria [Recovering/Resolving]
  - Blood creatinine increased [Recovering/Resolving]
  - Penile ulceration [Recovering/Resolving]
  - Urethral haemorrhage [Recovered/Resolved]

NARRATIVE: CASE EVENT DATE: 199609
